FAERS Safety Report 20606150 (Version 1)
Quarter: 2022Q1

REPORT INFORMATION
  Report Type: Spontaneous
  Country: US (occurrence: US)
  Receive Date: 20220317
  Receipt Date: 20220317
  Transmission Date: 20220424
  Serious: Yes (Other)
  Sender: FDA-Public Use
  Company Number: US-BIOGEN-2019BI00773715

PATIENT
  Age: 48 Year
  Sex: Female

DRUGS (3)
  1. TYSABRI [Suspect]
     Active Substance: NATALIZUMAB
     Indication: Multiple sclerosis
     Dosage: INFUSED OVER 1 HOUR
     Route: 065
     Dates: start: 20160523
  2. TYSABRI [Suspect]
     Active Substance: NATALIZUMAB
     Dosage: INFUSED OVER 1 HOUR
     Route: 065
  3. TYSABRI [Suspect]
     Active Substance: NATALIZUMAB
     Dosage: INFUSED OVER 1 HOUR
     Route: 065
     Dates: start: 20160523

REACTIONS (17)
  - Colitis ulcerative [Unknown]
  - Prescribed underdose [Not Recovered/Not Resolved]
  - Gastrooesophageal reflux disease [Unknown]
  - Conjunctivitis [Recovered/Resolved]
  - Sciatica [Not Recovered/Not Resolved]
  - Dysstasia [Not Recovered/Not Resolved]
  - Patella fracture [Unknown]
  - Hypoaesthesia [Unknown]
  - Pain [Unknown]
  - Memory impairment [Unknown]
  - Fear [Unknown]
  - Confusional state [Unknown]
  - Fall [Recovered/Resolved]
  - Fatigue [Not Recovered/Not Resolved]
  - Urinary tract infection [Recovered/Resolved]
  - Diarrhoea [Not Recovered/Not Resolved]
  - Weight decreased [Recovered/Resolved]

NARRATIVE: CASE EVENT DATE: 20160501
